FAERS Safety Report 22253953 (Version 1)
Quarter: 2023Q2

REPORT INFORMATION
  Report Type: Spontaneous
  Country: US (occurrence: None)
  Receive Date: 20230424
  Receipt Date: 20230424
  Transmission Date: 20230722
  Serious: Yes (unspecified)
  Sender: FDA-Public Use
  Company Number: None

PATIENT
  Age: 58 Year
  Sex: Male
  Weight: 90.72 kg

DRUGS (1)
  1. LOTREL [Suspect]
     Active Substance: AMLODIPINE BESYLATE\BENAZEPRIL HYDROCHLORIDE

REACTIONS (7)
  - Treatment failure [None]
  - Cough [None]
  - Hypoaesthesia [None]
  - Nervousness [None]
  - Product substitution issue [None]
  - Product use issue [None]
  - Product substitution issue [None]

NARRATIVE: CASE EVENT DATE: 20230402
